FAERS Safety Report 17238019 (Version 1)
Quarter: 2020Q1

REPORT INFORMATION
  Report Type: Spontaneous
  Country: US (occurrence: US)
  Receive Date: 20200106
  Receipt Date: 20200106
  Transmission Date: 20200409
  Serious: Yes (Other)
  Sender: FDA-Public Use
  Company Number: US-PACIRA-201900097

PATIENT
  Age: 66 Year
  Sex: Male
  Weight: 101.25 kg

DRUGS (10)
  1. MULTI-VITAMIN [Concomitant]
     Active Substance: .ALPHA.-TOCOPHEROL ACETATE, DL-\ASCORBIC ACID\CYANOCOBALAMIN\FLUORIDE ION\FOLIC ACID\NIACIN\PYRIDOXINE\RIBOFLAVIN\THIAMINE\VITAMIN A\VITAMIN D
  2. COENZYM Q10 [Concomitant]
  3. TRAMIDOL [Concomitant]
     Indication: SURGERY
  4. HYDROCODONE [Concomitant]
     Active Substance: HYDROCODONE
     Indication: SURGERY
  5. FISH OIL [Concomitant]
     Active Substance: FISH OIL
  6. TORIDOL [Concomitant]
     Indication: SURGERY
  7. TUMERIC [Concomitant]
     Active Substance: HERBALS\TURMERIC
  8. SAM-E [Concomitant]
     Active Substance: ADEMETIONINE
  9. EXPAREL [Suspect]
     Active Substance: BUPIVACAINE
     Indication: POSTOPERATIVE ANALGESIA
     Dosage: APPLIED DURING SURGERY
     Route: 050
     Dates: start: 20181026, end: 20181026
  10. BABY ASPIRIN [Concomitant]
     Active Substance: ASPIRIN

REACTIONS (1)
  - Myalgia [Recovering/Resolving]

NARRATIVE: CASE EVENT DATE: 20181027
